FAERS Safety Report 13836813 (Version 1)
Quarter: 2017Q3

REPORT INFORMATION
  Report Type: Spontaneous
  Country: US (occurrence: US)
  Receive Date: 20170804
  Receipt Date: 20170804
  Transmission Date: 20171127
  Serious: No
  Sender: FDA-Public Use
  Company Number: US-ROCHE-1184258

PATIENT
  Age: 89 Year
  Sex: Female

DRUGS (4)
  1. FOSAMAX [Concomitant]
     Active Substance: ALENDRONATE SODIUM
  2. ACTONEL [Concomitant]
     Active Substance: RISEDRONATE SODIUM
  3. BONIVA [Suspect]
     Active Substance: IBANDRONATE SODIUM
     Indication: PRODUCT USED FOR UNKNOWN INDICATION
     Route: 065
  4. BONIVA [Suspect]
     Active Substance: IBANDRONATE SODIUM
     Route: 065
     Dates: start: 201301

REACTIONS (1)
  - Tooth disorder [Unknown]
